FAERS Safety Report 12683306 (Version 5)
Quarter: 2016Q4

REPORT INFORMATION
  Report Type: Report from Study
  Country: US (occurrence: US)
  Receive Date: 20160825
  Receipt Date: 20161012
  Transmission Date: 20170207
  Serious: Yes (Other)
  Sender: FDA-Public Use
  Company Number: US-BAUSCH-BL-2016-020131

PATIENT
  Age: 63 Year
  Sex: Female
  Weight: 63.56 kg

DRUGS (5)
  1. XENAZINE [Suspect]
     Active Substance: TETRABENAZINE
     Route: 048
     Dates: start: 20160818, end: 2016
  2. CLONAZEPAM. [Concomitant]
     Active Substance: CLONAZEPAM
     Indication: PRODUCT USED FOR UNKNOWN INDICATION
  3. XENAZINE [Suspect]
     Active Substance: TETRABENAZINE
     Dosage: ONE TABLET EVERY NIGHT AND ONE-HALF TABLET ONCE DAILY IN THE EVENING
     Route: 048
     Dates: start: 20160815, end: 20160819
  4. XENAZINE [Suspect]
     Active Substance: TETRABENAZINE
     Dosage: HALF TABLET
     Route: 048
     Dates: start: 2016, end: 2016
  5. XENAZINE [Suspect]
     Active Substance: TETRABENAZINE
     Indication: CHOREA
     Route: 048
     Dates: start: 20160803, end: 2016

REACTIONS (12)
  - Poor quality sleep [Recovered/Resolved]
  - Fatigue [Recovered/Resolved]
  - Nausea [Recovered/Resolved]
  - Hypertension [Recovered/Resolved]
  - Dizziness [Recovered/Resolved]
  - Muscle disorder [Recovered/Resolved]
  - Palpitations [Recovered/Resolved]
  - Heart rate increased [Recovered/Resolved]
  - Somnolence [Recovered/Resolved]
  - Limb discomfort [Recovered/Resolved]
  - Feeding disorder [Recovered/Resolved]
  - Hyperhidrosis [Recovered/Resolved]

NARRATIVE: CASE EVENT DATE: 2016
